FAERS Safety Report 4269965-5 (Version None)
Quarter: 2004Q1

REPORT INFORMATION
  Report Type: 
  Country: None (occurrence: None)
  Receive Date: 20040112
  Receipt Date: 20031231
  Transmission Date: 20041129
  Serious: Yes (Disabling, Other)
  Sender: FDA-Public Use
  Company Number: NSADSS2002039551

PATIENT
  Age: 56 Year
  Sex: Female
  Weight: 77.1115 kg

DRUGS (5)
  1. REMICADE [Suspect]
     Indication: RHEUMATOID ARTHRITIS
     Dosage: SEE IMAGE
     Route: 041
     Dates: start: 20010301, end: 20010301
  2. REMICADE [Suspect]
     Indication: RHEUMATOID ARTHRITIS
     Dosage: SEE IMAGE
     Route: 041
     Dates: start: 20020801, end: 20020801
  3. HORMONE (ALL OTHER THERAPEUTIC PRODUCTS) [Concomitant]
  4. ELAVIL [Concomitant]
  5. CLEROREL (DEANOL (ACEGLUMATE) [Concomitant]

REACTIONS (8)
  - BLINDNESS UNILATERAL [None]
  - BLOOD PRESSURE INCREASED [None]
  - CHEST PAIN [None]
  - NEOPLASM [None]
  - PRURITUS [None]
  - RENAL CYST [None]
  - THYROID FUNCTION TEST ABNORMAL [None]
  - URTICARIA [None]
